FAERS Safety Report 18802231 (Version 17)
Quarter: 2023Q4

REPORT INFORMATION
  Report Type: Spontaneous
  Country: US (occurrence: US)
  Receive Date: 20210128
  Receipt Date: 20231201
  Transmission Date: 20240110
  Serious: Yes (Hospitalization, Other)
  Sender: FDA-Public Use
  Company Number: US-PFIZER INC-2021061798

PATIENT
  Age: 61 Year
  Sex: Female

DRUGS (3)
  1. IBRANCE [Suspect]
     Active Substance: PALBOCICLIB
     Dosage: 125 MG
     Dates: end: 202101
  2. IBRANCE [Suspect]
     Active Substance: PALBOCICLIB
     Dosage: 100 MG
  3. IBRANCE [Suspect]
     Active Substance: PALBOCICLIB
     Dosage: 75 MG, DAILY
     Route: 048

REACTIONS (20)
  - Pulmonary oedema [Unknown]
  - Cardiac disorder [Unknown]
  - Dyspnoea [Unknown]
  - Seizure [Recovered/Resolved]
  - Suicidal ideation [Unknown]
  - Crying [Unknown]
  - White blood cell count decreased [Unknown]
  - Depressed mood [Unknown]
  - Feeling abnormal [Unknown]
  - Somnolence [Unknown]
  - Pain in extremity [Unknown]
  - Peripheral swelling [Unknown]
  - Renal disorder [Unknown]
  - Malaise [Not Recovered/Not Resolved]
  - Dyspnoea [Unknown]
  - Melanoderma [Unknown]
  - Menopause [Unknown]
  - Fall [Unknown]
  - Neoplasm progression [Unknown]
  - Asthenia [Unknown]

NARRATIVE: CASE EVENT DATE: 20230101
